FAERS Safety Report 7668598-8 (Version None)
Quarter: 2011Q3

REPORT INFORMATION
  Report Type: 
  Country: None (occurrence: None)
  Receive Date: 20110808
  Receipt Date: 20110808
  Transmission Date: 20111222
  Serious: Yes (Other)
  Sender: FDA-Public Use
  Company Number: None

PATIENT
  Age: 33 Year
  Sex: Female
  Weight: 61.688 kg

DRUGS (1)
  1. DOXYCYCLINE HYCLATE [Suspect]
     Indication: INFECTION PROPHYLAXIS
     Dosage: 100 MG
     Route: 048
     Dates: start: 20110808, end: 20110811

REACTIONS (1)
  - NEUROPATHY PERIPHERAL [None]
